FAERS Safety Report 15141016 (Version 1)
Quarter: 2018Q3

REPORT INFORMATION
  Report Type: Spontaneous
  Country: AE (occurrence: AE)
  Receive Date: 20180618
  Receipt Date: 20180618
  Transmission Date: 20181010
  Serious: No
  Sender: FDA-Public Use
  Company Number: None

PATIENT
  Age: 28 Year
  Sex: Female
  Weight: 80 kg

DRUGS (1)
  1. DIZINIL (DIMENHYDRINATE 50MG) [Suspect]
     Active Substance: DIMENHYDRINATE
     Indication: INSOMNIA
     Dosage: ?          QUANTITY:1 TABLET(S);?
     Route: 048

REACTIONS (5)
  - Middle insomnia [None]
  - Pollakiuria [None]
  - Insomnia [None]
  - Micturition urgency [None]
  - Urine output increased [None]

NARRATIVE: CASE EVENT DATE: 20180617
